FAERS Safety Report 8595801-2 (Version None)
Quarter: 2012Q3

REPORT INFORMATION
  Report Type: 
  Country: None (occurrence: None)
  Receive Date: 20120815
  Receipt Date: 20120810
  Transmission Date: 20120928
  Serious: Yes (Hospitalization)
  Sender: FDA-Public Use
  Company Number: DE-ROCHE-1090943

PATIENT
  Sex: Female

DRUGS (5)
  1. PANTOPRAZOL NATRIUM [Concomitant]
     Indication: PROPHYLAXIS AGAINST GASTROINTESTINAL ULCER
     Route: 048
     Dates: start: 20120626
  2. AMLODIPINE [Concomitant]
     Indication: DRUG THERAPY
     Route: 048
     Dates: start: 20120626
  3. RAMIPRIL [Concomitant]
     Indication: ANGIOTENSIN CONVERTING ENZYME DECREASED
     Route: 048
     Dates: start: 20120626
  4. TORSEMIDE [Concomitant]
     Indication: DIURETIC THERAPY
     Route: 048
  5. MABTHERA [Suspect]
     Indication: B-CELL LYMPHOMA
     Route: 042
     Dates: start: 20120626, end: 20120626

REACTIONS (1)
  - PANCREATITIS [None]
